FAERS Safety Report 13089043 (Version 1)
Quarter: 2017Q1

REPORT INFORMATION
  Report Type: Spontaneous
  Country: US (occurrence: US)
  Receive Date: 20170104
  Receipt Date: 20170104
  Transmission Date: 20170428
  Serious: Yes (Other)
  Sender: FDA-Public Use
  Company Number: None

PATIENT
  Age: 64 Year
  Sex: Female
  Weight: 48.6 kg

DRUGS (6)
  1. VANCOMYCIN [Concomitant]
     Active Substance: VANCOMYCIN
  2. VITAMIN B [Concomitant]
     Active Substance: VITAMIN B
  3. PROBIOTICS [Concomitant]
     Active Substance: PROBIOTICS NOS
  4. CLINDAMYCIN. [Suspect]
     Active Substance: CLINDAMYCIN
     Indication: TOOTH INFECTION
     Dosage: QUANTITY:2 TABLET(S); EVERY 6 HOURS; ORAL?
     Route: 048
     Dates: start: 20161028, end: 20161102
  5. FISH OIL [Concomitant]
     Active Substance: FISH OIL
  6. VIT D-3 [Concomitant]

REACTIONS (4)
  - Chills [None]
  - Diarrhoea [None]
  - Pyrexia [None]
  - Clostridium test positive [None]

NARRATIVE: CASE EVENT DATE: 20161115
